FAERS Safety Report 13558060 (Version 1)
Quarter: 2017Q2

REPORT INFORMATION
  Report Type: Spontaneous
  Country: US (occurrence: US)
  Receive Date: 20170517
  Receipt Date: 20170517
  Transmission Date: 20170830
  Serious: No
  Sender: FDA-Public Use
  Company Number: None

PATIENT
  Age: 75 Year
  Sex: Male

DRUGS (4)
  1. NEURONTIN [Concomitant]
     Active Substance: GABAPENTIN
  2. AMPYRA [Suspect]
     Active Substance: DALFAMPRIDINE
     Indication: MULTIPLE SCLEROSIS
     Route: 048
     Dates: start: 201307
  3. ZOCOR [Concomitant]
     Active Substance: SIMVASTATIN
  4. FLONASE [Concomitant]
     Active Substance: FLUTICASONE PROPIONATE

REACTIONS (4)
  - Hyperhidrosis [None]
  - Dyspnoea [None]
  - Lactic acidosis [None]
  - Nausea [None]

NARRATIVE: CASE EVENT DATE: 20170511
